FAERS Safety Report 8336307-5 (Version None)
Quarter: 2012Q2

REPORT INFORMATION
  Report Type: 
  Country: None (occurrence: None)
  Receive Date: 20120504
  Receipt Date: 20120427
  Transmission Date: 20120825
  Serious: Yes (Other)
  Sender: FDA-Public Use
  Company Number: PHHY2012IE011836

PATIENT
  Sex: Female
  Weight: 23.8 kg

DRUGS (3)
  1. ZITHROMAX [Concomitant]
     Route: 048
     Dates: start: 20090101
  2. NASONEX [Concomitant]
     Dates: start: 20090101
  3. TOBI [Suspect]
     Dates: start: 20111109

REACTIONS (3)
  - DYSPHONIA [None]
  - APHONIA [None]
  - PRIMARY CILIARY DYSKINESIA [None]
